FAERS Safety Report 19146209 (Version 3)
Quarter: 2021Q2

REPORT INFORMATION
  Report Type: Spontaneous
  Country: AT (occurrence: AT)
  Receive Date: 20210416
  Receipt Date: 20210608
  Transmission Date: 20210717
  Serious: Yes (Death, Hospitalization, Other)
  Sender: FDA-Public Use
  Company Number: AT-CELLTRION INC.-2019AT028748

PATIENT

DRUGS (14)
  1. RITUXIMAB (UNKNOWN) [Suspect]
     Active Substance: RITUXIMAB
     Indication: IMMUNOSUPPRESSION
     Dosage: 650 MG (4 DOSES)
     Route: 065
     Dates: start: 20180511, end: 20180525
  2. RITUXIMAB (UNKNOWN) [Suspect]
     Active Substance: RITUXIMAB
     Indication: ACQUIRED HAEMOPHILIA
     Dosage: UNK
     Route: 065
  3. EMICIZUMAB. [Suspect]
     Active Substance: EMICIZUMAB
     Indication: ACQUIRED HAEMOPHILIA
     Dosage: 3 MG/KG BODY WEIGHT (FIRST DOSE)
     Route: 058
  4. FACTOR VIIA [Concomitant]
     Active Substance: COAGULATION FACTOR VIIA HUMAN
     Indication: ACQUIRED HAEMOPHILIA
     Dosage: 606 MG
     Route: 065
     Dates: start: 20180514
  5. EMICIZUMAB. [Suspect]
     Active Substance: EMICIZUMAB
     Indication: ACQUIRED HAEMOPHILIA
     Dosage: 3 MG/KG BW WEEKLY FOR 2?3 ADDITIONAL DOSES
  6. FEIBA [Concomitant]
     Active Substance: ANTI-INHIBITOR COAGULANT COMPLEX
     Indication: ACQUIRED HAEMOPHILIA
  7. RED BLOOD CELLS, CONCENTRATED [Concomitant]
     Active Substance: HUMAN RED BLOOD CELL
     Indication: ACQUIRED HAEMOPHILIA
  8. PREDNISONE. [Suspect]
     Active Substance: PREDNISONE
     Indication: IMMUNOSUPPRESSION
     Dosage: UNK
     Route: 065
     Dates: start: 20180430, end: 20180614
  9. RITUXIMAB (UNKNOWN) [Suspect]
     Active Substance: RITUXIMAB
     Indication: ACQUIRED HAEMOPHILIA
     Dosage: MEDIAN 4 DOSES (2?5) AT MEDIAN DOSE OF 2500 MG (1000?5000)
  10. EMICIZUMAB. [Suspect]
     Active Substance: EMICIZUMAB
     Dosage: UNK
     Route: 065
  11. PREDNISONE. [Suspect]
     Active Substance: PREDNISONE
     Dosage: 1 MG/KG BW FOR 1 WEEK
  12. EMICIZUMAB. [Suspect]
     Active Substance: EMICIZUMAB
     Dosage: 14/JUN/2018: 105 MG TOTAL 6 APPLICATIONS
     Route: 058
     Dates: start: 20180510, end: 20180614
  13. PREDNISONE. [Suspect]
     Active Substance: PREDNISONE
     Dosage: DOSE TAPERING OVER THE FOLLOWING 2 WEEKS
  14. EMICIZUMAB. [Suspect]
     Active Substance: EMICIZUMAB
     Dosage: DOSE REDUCTION TO 1.5 MG/KG AND INTERVAL PROLONGATION TO UP TO 4 WEEKS WHEN FVIII:H EXCEEDED 10%

REACTIONS (9)
  - Condition aggravated [Fatal]
  - Inflammatory bowel disease [Fatal]
  - Peritonitis [Fatal]
  - Intestinal perforation [Fatal]
  - Neutropenic sepsis [Recovered/Resolved]
  - Intentional product use issue [Unknown]
  - Off label use [Unknown]
  - Product use in unapproved indication [Unknown]
  - Drug effective for unapproved indication [Unknown]
